FAERS Safety Report 22019730 (Version 5)
Quarter: 2023Q2

REPORT INFORMATION
  Report Type: Spontaneous
  Country: FR (occurrence: FR)
  Receive Date: 20230222
  Receipt Date: 20230424
  Transmission Date: 20230722
  Serious: Yes (Hospitalization, Other)
  Sender: FDA-Public Use
  Company Number: FR-ASTELLAS-2023US005799

PATIENT
  Age: 64 Year
  Sex: Female

DRUGS (4)
  1. TACROLIMUS [Suspect]
     Active Substance: TACROLIMUS
     Indication: Product used for unknown indication
     Dosage: UNK UNK, UNKNOWN FREQ.
     Route: 065
  2. CARBOPLATIN\GEMCITABINE [Suspect]
     Active Substance: CARBOPLATIN\GEMCITABINE
     Indication: Metastases to lung
     Dosage: UNK UNK, UNKNOWN FREQ. (FIRST ROUND)
     Route: 065
  3. CARBOPLATIN\GEMCITABINE [Suspect]
     Active Substance: CARBOPLATIN\GEMCITABINE
     Dosage: SECOND ROUND OF CARBOPLATIN AUC3 + GEMCITABINE 750MG/M2, EVERY 3 WEEKS (WITHOUT ANY DAY 8 DOSE)
     Route: 065
     Dates: start: 202103, end: 202107
  4. CARBOPLATIN\GEMCITABINE [Suspect]
     Active Substance: CARBOPLATIN\GEMCITABINE
     Dosage: UNK UNK, UNKNOWN FREQ. (THIRD ROUND)
     Route: 065
     Dates: start: 202207, end: 202208

REACTIONS (9)
  - Pulmonary mass [Unknown]
  - Condition aggravated [Unknown]
  - Renal graft infection [Recovered/Resolved]
  - Sepsis [Recovered/Resolved]
  - Septic shock [Unknown]
  - Thrombocytopenia [Unknown]
  - Asthenia [Unknown]
  - Metastases to lung [Unknown]
  - Rash [Recovering/Resolving]

NARRATIVE: CASE EVENT DATE: 20180501
